FAERS Safety Report 24792670 (Version 1)
Quarter: 2024Q4

REPORT INFORMATION
  Report Type: Spontaneous
  Country: GB (occurrence: GB)
  Receive Date: 20241231
  Receipt Date: 20241231
  Transmission Date: 20250115
  Serious: Yes (Other)
  Sender: TEVA
  Company Number: None

PATIENT
  Age: 54 Year
  Sex: Female
  Weight: 65 kg

DRUGS (9)
  1. TRIMETHOPRIM [Suspect]
     Active Substance: TRIMETHOPRIM
     Indication: Product used for unknown indication
     Route: 048
     Dates: start: 20241217
  2. OMEPRAZOLE [Concomitant]
     Active Substance: OMEPRAZOLE
     Indication: Ill-defined disorder
     Dosage: TAKE ONE DAILY
     Dates: start: 20241021
  3. PYRIDOSTIGMINE BROMIDE [Concomitant]
     Active Substance: PYRIDOSTIGMINE BROMIDE
     Indication: Ill-defined disorder
     Dosage: UP TO SIX TIMES A DAY AS ADVISED BY SPECIALIST
     Dates: start: 20240205
  4. EVACAL [Concomitant]
     Indication: Ill-defined disorder
     Dosage: DAILY DOSE: 2 DOSAGE FORM
     Dates: start: 20241021, end: 20241021
  5. EZETIMIBE [Concomitant]
     Active Substance: EZETIMIBE
     Indication: Ill-defined disorder
     Dosage: DAILY DOSE: 1 DOSAGE FORM
     Dates: start: 20241213
  6. PREDNISOLONE [Concomitant]
     Active Substance: PREDNISOLONE
     Indication: Ill-defined disorder
     Dosage: TWO EACH MORNING
     Dates: start: 20241021
  7. MYCOPHENOLATE MOFETIL [Concomitant]
     Active Substance: MYCOPHENOLATE MOFETIL
     Indication: Ill-defined disorder
     Dosage: DAILY DOSE: 4 DOSAGE FORM
     Dates: start: 20240603
  8. NITROFURANTOIN [Concomitant]
     Active Substance: NITROFURANTOIN
     Indication: Ill-defined disorder
     Dosage: DAILY DOSE: 4 DOSAGE FORM
  9. ADCAL [Concomitant]
     Indication: Ill-defined disorder
     Dosage: DAILY DOSE: 2 DOSAGE FORM
     Dates: start: 20241021

REACTIONS (1)
  - Myasthenia gravis [Recovered/Resolved]

NARRATIVE: CASE EVENT DATE: 20241217
